FAERS Safety Report 7197014-8 (Version None)
Quarter: 2010Q4

REPORT INFORMATION
  Report Type: 
  Country: None (occurrence: None)
  Receive Date: 20101224
  Receipt Date: 20101217
  Transmission Date: 20110411
  Serious: Yes (Other)
  Sender: FDA-Public Use
  Company Number: US-PURDUE-USA-2010-0060051

PATIENT
  Age: 62 Year
  Sex: Female

DRUGS (1)
  1. OXYCONTIN [Suspect]
     Indication: PAIN
     Dosage: 240 MG, TID

REACTIONS (5)
  - CHOLECYSTECTOMY [None]
  - GASTROOESOPHAGEAL REFLUX DISEASE [None]
  - HEPATITIS B [None]
  - PANCREATITIS [None]
  - ULCER [None]
